FAERS Safety Report 8195759 (Version 55)
Quarter: 2021Q1

REPORT INFORMATION
  Report Type: Report from Study
  Country: CA (occurrence: CA)
  Receive Date: 20111024
  Receipt Date: 20210328
  Transmission Date: 20210420
  Serious: Yes (Hospitalization, Other)
  Sender: FDA-Public Use
  Company Number: PHHY2011CA72264

PATIENT
  Age: 48 Year
  Sex: Female

DRUGS (11)
  1. SANDOSTATIN LAR DEPOT [Suspect]
     Active Substance: OCTREOTIDE ACETATE
     Dosage: 20 MG, EVERY 3 WEEKS
     Route: 030
  2. SANDOSTATIN [Suspect]
     Active Substance: OCTREOTIDE ACETATE
  3. LASIX [Concomitant]
     Active Substance: FUROSEMIDE
     Dosage: 20 MG, QD
     Route: 065
  4. SANDOSTATIN LAR DEPOT [Suspect]
     Active Substance: OCTREOTIDE ACETATE
     Dosage: 20 MG, Q3W
     Route: 030
  5. SANDOSTATIN [Suspect]
     Active Substance: OCTREOTIDE ACETATE
  6. SANDOSTATIN LAR DEPOT [Suspect]
     Active Substance: OCTREOTIDE ACETATE
     Indication: NEUROENDOCRINE TUMOUR
     Dosage: 20 MG, QMO (EVERY 4 WEEKS)
     Route: 030
     Dates: start: 20101109
  7. LASIX [Concomitant]
     Active Substance: FUROSEMIDE
     Indication: PRODUCT USED FOR UNKNOWN INDICATION
     Dosage: 40 MG, QD
     Route: 048
     Dates: start: 20200503
  8. SANDOSTATIN LAR DEPOT [Suspect]
     Active Substance: OCTREOTIDE ACETATE
     Dosage: 20 MG, QMO
     Route: 030
  9. SANDOSTATIN LAR DEPOT [Suspect]
     Active Substance: OCTREOTIDE ACETATE
     Dosage: 20 MG, EVERY 3 WEEKS
     Route: 030
  10. SANDOSTATIN LAR DEPOT [Suspect]
     Active Substance: OCTREOTIDE ACETATE
     Dosage: 20 MG, QMO
     Route: 030
  11. SANDOSTATIN [Suspect]
     Active Substance: OCTREOTIDE ACETATE
     Indication: NEUROENDOCRINE TUMOUR
     Dosage: UNK
     Route: 058

REACTIONS (68)
  - Malaise [Unknown]
  - Swelling face [Recovered/Resolved]
  - Peripheral swelling [Unknown]
  - Barium impaction [Unknown]
  - Blood pressure systolic increased [Unknown]
  - Cough [Recovering/Resolving]
  - Blood iron decreased [Not Recovered/Not Resolved]
  - Weight decreased [Recovering/Resolving]
  - Haemoglobin decreased [Not Recovered/Not Resolved]
  - Heart rate decreased [Unknown]
  - Diarrhoea [Unknown]
  - Intestinal obstruction [Unknown]
  - Rib fracture [Unknown]
  - Cholelithiasis [Unknown]
  - Low density lipoprotein increased [Unknown]
  - Pyrexia [Unknown]
  - Sleep disorder [Recovered/Resolved]
  - Blood iron increased [Unknown]
  - Blood lactate dehydrogenase increased [Unknown]
  - Dental discomfort [Unknown]
  - Vomiting [Unknown]
  - Dyspnoea [Unknown]
  - Abdominal pain [Recovered/Resolved]
  - Hand fracture [Unknown]
  - Hyperphagia [Unknown]
  - Frequent bowel movements [Recovered/Resolved]
  - Oedema [Recovered/Resolved]
  - Joint swelling [Unknown]
  - Vitamin D increased [Unknown]
  - Scar [Unknown]
  - Gastroenteritis viral [Unknown]
  - Alopecia [Unknown]
  - Nausea [Unknown]
  - Back pain [Unknown]
  - Intestinal obstruction [Recovered/Resolved]
  - Neoplasm [Unknown]
  - Oedema peripheral [Unknown]
  - Increased appetite [Recovering/Resolving]
  - Full blood count abnormal [Unknown]
  - Oedema [Recovered/Resolved]
  - Weight increased [Unknown]
  - Bronchitis [Unknown]
  - Influenza [Recovered/Resolved]
  - Haematoma [Unknown]
  - Blood pressure decreased [Unknown]
  - Peripheral swelling [Unknown]
  - Blood pressure systolic decreased [Unknown]
  - Ear infection [Unknown]
  - Abdominal pain upper [Not Recovered/Not Resolved]
  - Inappropriate schedule of product administration [Unknown]
  - Serum ferritin decreased [Not Recovered/Not Resolved]
  - Functional gastrointestinal disorder [Recovering/Resolving]
  - Viral upper respiratory tract infection [Recovering/Resolving]
  - Peripheral swelling [Recovered/Resolved]
  - Laryngitis [Unknown]
  - Alopecia areata [Unknown]
  - Abdominal distension [Unknown]
  - Injection site pain [Recovered/Resolved]
  - Injection site haemorrhage [Recovered/Resolved]
  - Gallbladder disorder [Unknown]
  - Fall [Unknown]
  - Weight gain poor [Recovering/Resolving]
  - Vitamin B12 decreased [Unknown]
  - Hepatic enzyme increased [Unknown]
  - Chest discomfort [Unknown]
  - Dehydration [Unknown]
  - Drug ineffective [Unknown]
  - Lymphadenopathy [Unknown]

NARRATIVE: CASE EVENT DATE: 2014
